FAERS Safety Report 7577086-9 (Version None)
Quarter: 2011Q2

REPORT INFORMATION
  Report Type: 
  Country: None (occurrence: None)
  Receive Date: 20110624
  Receipt Date: 20110624
  Transmission Date: 20111010
  Serious: No
  Sender: FDA-Public Use
  Company Number: None

PATIENT
  Age: 58 Year
  Sex: Female
  Weight: 147.8726 kg

DRUGS (1)
  1. LEVAQUIN [Suspect]
     Indication: UPPER RESPIRATORY TRACT INFECTION
     Dosage: 1 TAB 1XDAY PO
     Route: 048
     Dates: start: 20110616, end: 20110621

REACTIONS (10)
  - JOINT SWELLING [None]
  - BLOOD GLUCOSE INCREASED [None]
  - FATIGUE [None]
  - ABDOMINAL PAIN UPPER [None]
  - MUSCULOSKELETAL PAIN [None]
  - ABASIA [None]
  - ASTHENIA [None]
  - CHEST PAIN [None]
  - DYSSTASIA [None]
  - NAUSEA [None]
